FAERS Safety Report 21877229 (Version 1)
Quarter: 2023Q1

REPORT INFORMATION
  Report Type: Spontaneous
  Country: US (occurrence: None)
  Receive Date: 20230116
  Receipt Date: 20230116
  Transmission Date: 20230418
  Serious: No
  Sender: FDA-Public Use
  Company Number: None

PATIENT
  Age: 74 Year
  Sex: Female
  Weight: 60.92 kg

DRUGS (7)
  1. VERZENIO [Suspect]
     Active Substance: ABEMACICLIB
     Indication: Breast cancer female
     Dosage: 150MG TWICE DAILY ORAL
     Route: 048
     Dates: start: 202212
  2. CALTRATE 600+D [Concomitant]
  3. CLARITIN [Concomitant]
     Active Substance: LORATADINE
  4. DOXYCYCLINE [Concomitant]
     Active Substance: DOXYCYCLINE
  5. IBUPROFEN [Concomitant]
     Active Substance: IBUPROFEN
  6. LETROZOLE [Concomitant]
     Active Substance: LETROZOLE
  7. PROLIA [Concomitant]
     Active Substance: DENOSUMAB

REACTIONS (5)
  - Diarrhoea [None]
  - Nausea [None]
  - Rash [None]
  - White blood cell count decreased [None]
  - Red blood cell count decreased [None]
